FAERS Safety Report 7874534-1 (Version None)
Quarter: 2011Q4

REPORT INFORMATION
  Report Type: 
  Country: None (occurrence: None)
  Receive Date: 20111030
  Receipt Date: 20110920
  Transmission Date: 20120403
  Serious: Yes (Death, Life-Threatening, Other)
  Sender: FDA-Public Use
  Company Number: JP-CELGENEUS-087-50794-11103019

PATIENT
  Age: 67 Year
  Sex: Female
  Weight: 40 kg

DRUGS (34)
  1. VIDAZA [Suspect]
     Dosage: 75 MILLIGRAM/SQ. METER
     Route: 058
     Dates: start: 20110331, end: 20110406
  2. ALDACTONE [Concomitant]
     Route: 065
     Dates: start: 20101127, end: 20110725
  3. ACETAMINOPHEN [Concomitant]
     Route: 065
     Dates: start: 20101116, end: 20110903
  4. ALLOPURINOL [Concomitant]
     Route: 065
     Dates: start: 20110207, end: 20110903
  5. ZOFRAN [Concomitant]
     Route: 065
     Dates: start: 20110509, end: 20110517
  6. EXJADE [Concomitant]
     Route: 065
     Dates: start: 20110711, end: 20110903
  7. VANCOMYCIN [Concomitant]
     Route: 065
     Dates: start: 20110831, end: 20110904
  8. VIDAZA [Suspect]
     Dosage: 75 MILLIGRAM/SQ. METER
     Route: 058
     Dates: start: 20110704, end: 20110708
  9. FORSENID [Concomitant]
     Route: 065
     Dates: start: 20110126, end: 20110903
  10. LEVOFLOXACIN [Concomitant]
     Route: 065
     Dates: start: 20110510, end: 20110516
  11. LEVOFLOXACIN [Concomitant]
     Route: 065
     Dates: start: 20110704, end: 20110717
  12. LEVOFLOXACIN [Concomitant]
     Route: 065
     Dates: start: 20110801, end: 20110808
  13. MEROPENEM [Concomitant]
     Route: 041
     Dates: start: 20110331, end: 20110408
  14. VIDAZA [Suspect]
     Dosage: 75 MILLIGRAM/SQ. METER
     Route: 058
     Dates: start: 20110711, end: 20110712
  15. LASIX [Concomitant]
     Route: 065
     Dates: start: 20101116, end: 20110725
  16. ONEALFA [Concomitant]
     Route: 065
     Dates: start: 20101201, end: 20110903
  17. MAGNESIUM SULFATE [Concomitant]
     Route: 065
     Dates: start: 20110126, end: 20110903
  18. CLARITHROMYCIN [Concomitant]
     Route: 065
     Dates: start: 20110310, end: 20110516
  19. GLAKAY [Concomitant]
     Route: 065
     Dates: start: 20110101, end: 20110903
  20. OMEGACIN [Concomitant]
     Route: 065
     Dates: start: 20110829, end: 20110904
  21. ZOFRAN [Concomitant]
     Route: 065
     Dates: start: 20110606, end: 20110614
  22. HABEKACIN [Concomitant]
     Route: 065
     Dates: start: 20110402, end: 20110408
  23. RAMELTEON [Concomitant]
     Route: 065
     Dates: start: 20110331, end: 20110404
  24. ZOFRAN [Concomitant]
     Route: 065
     Dates: start: 20110830, end: 20110903
  25. HYDROCORTISONE SODIUM SUCCINATE [Concomitant]
     Route: 065
     Dates: start: 20110401, end: 20110406
  26. VIDAZA [Suspect]
     Dosage: 75 MILLIGRAM/SQ. METER
     Route: 058
     Dates: start: 20110509, end: 20110513
  27. RESTAMIN CORTISONE [Concomitant]
     Route: 065
     Dates: start: 20110328, end: 20110410
  28. ZOFRAN [Concomitant]
     Route: 065
     Dates: start: 20110704, end: 20110712
  29. DEPAS [Concomitant]
     Route: 065
     Dates: start: 20110719, end: 20110903
  30. VIDAZA [Suspect]
     Dosage: 75 MILLIGRAM/SQ. METER
     Route: 058
     Dates: start: 20110516, end: 20110517
  31. VIDAZA [Suspect]
     Dosage: 75 MILLIGRAM/SQ. METER
     Route: 058
     Dates: start: 20110606, end: 20110610
  32. VIDAZA [Suspect]
     Dosage: 75 MILLIGRAM/SQ. METER
     Route: 058
     Dates: start: 20110613, end: 20110614
  33. VIDAZA [Suspect]
     Dosage: 75 MILLIGRAM/SQ. METER
     Route: 058
     Dates: start: 20110830, end: 20110904
  34. PREDNISOLONE [Concomitant]
     Route: 065
     Dates: start: 20101125, end: 20110828

REACTIONS (4)
  - NEUTROPENIA [None]
  - MYELODYSPLASTIC SYNDROME TRANSFORMATION [None]
  - LEUKAEMIA [None]
  - CELLULITIS [None]
